FAERS Safety Report 9468640 (Version 1)
Quarter: 2013Q3

REPORT INFORMATION
  Report Type: Spontaneous
  Country: US (occurrence: US)
  Receive Date: 20130821
  Receipt Date: 20130821
  Transmission Date: 20140515
  Serious: Yes (Hospitalization)
  Sender: FDA-Public Use
  Company Number: US-MYLANLABS-2013S1017907

PATIENT
  Age: 35 Year
  Sex: Female

DRUGS (5)
  1. TRIAMCINOLONE [Suspect]
     Route: 014
  2. FLUOXETINE [Interacting]
     Dosage: 60MG
     Route: 065
  3. LACTULOSE [Concomitant]
     Dosage: 10MG/15ML
     Route: 065
  4. ZOLPIDEM [Concomitant]
     Dosage: 5MG
     Route: 065
  5. POTASSIUM CHLORIDE [Concomitant]
     Dosage: 10 MEQ
     Route: 065

REACTIONS (2)
  - Cushing^s syndrome [Recovering/Resolving]
  - Drug interaction [Recovering/Resolving]
